FAERS Safety Report 9074608 (Version 1)
Quarter: 2013Q1

REPORT INFORMATION
  Report Type: Report from Study
  Country: US (occurrence: US)
  Receive Date: 20130129
  Receipt Date: 20130129
  Transmission Date: 20140127
  Serious: No
  Sender: FDA-Public Use
  Company Number: US-ABBOTT-12P-163-0930543-00

PATIENT
  Age: 48 Year
  Sex: Female
  Weight: 139.83 kg

DRUGS (14)
  1. HUMIRA 40 MG/0.8 ML PEN [Suspect]
     Indication: RHEUMATOID ARTHRITIS
     Dates: start: 20120416
  2. LABETALOL HCL [Concomitant]
     Indication: BLOOD PRESSURE
  3. ERGOCALCIFEROL [Concomitant]
     Indication: BLOOD POTASSIUM
  4. KLORCON [Concomitant]
     Indication: PRODUCT USED FOR UNKNOWN INDICATION
  5. ZYRTEC [Concomitant]
     Indication: PRODUCT USED FOR UNKNOWN INDICATION
     Dosage: PILL
  6. CATAPRES PATCH [Concomitant]
     Indication: PRODUCT USED FOR UNKNOWN INDICATION
  7. AMITRIPYLINE HCL [Concomitant]
     Indication: PRODUCT USED FOR UNKNOWN INDICATION
     Dosage: 10MG AT BEDTIME
  8. ALBUTEROL [Concomitant]
     Indication: ASTHMA
     Dosage: 2 PUFFS EVERY 4 HOURS AS NEEDED
  9. NYSTATIN [Concomitant]
     Indication: FUNGAL INFECTION
     Dosage: APPLY UNDER THE BREAST AREA TID
  10. BUSPAR [Concomitant]
     Indication: ANXIETY
  11. TRIBENZOR [Concomitant]
     Indication: BLOOD PRESSURE
     Dosage: 40/10/25MG DAILY
  12. FLEXOPRINE [Concomitant]
     Indication: DEPRESSION
     Dosage: 40MG DAILY
  13. PROTONIX [Concomitant]
     Indication: PRODUCT USED FOR UNKNOWN INDICATION
  14. VESICARE [Concomitant]
     Indication: PRODUCT USED FOR UNKNOWN INDICATION
     Dosage: 5MG DAILY

REACTIONS (4)
  - Decreased appetite [Not Recovered/Not Resolved]
  - Abdominal pain upper [Recovering/Resolving]
  - Nausea [Not Recovered/Not Resolved]
  - Abdominal tenderness [Not Recovered/Not Resolved]
